FAERS Safety Report 11350848 (Version 1)
Quarter: 2015Q3

REPORT INFORMATION
  Report Type: Spontaneous
  Country: US (occurrence: US)
  Receive Date: 20150807
  Receipt Date: 20150807
  Transmission Date: 20151125
  Serious: No
  Sender: FDA-Public Use
  Company Number: US-JNJFOC-20150411365

PATIENT
  Age: 34 Year
  Sex: Male
  Weight: 86.18 kg

DRUGS (6)
  1. VISINE ORIGINAL REDNESS RELIEF [Suspect]
     Active Substance: TETRAHYDROZOLINE HYDROCHLORIDE
     Indication: OCULAR HYPERAEMIA
     Dosage: 1-2 DROPS PER EYE AT LEAST 3-4 TIMES A DAY
     Route: 047
  2. VISINE A [Suspect]
     Active Substance: NAPHAZOLINE HYDROCHLORIDE\PHENIRAMINE MALEATE
     Indication: OCULAR HYPERAEMIA
     Dosage: 1-2 DROPS PER EYE AT LEAST 3-4 TIMES A DAY
     Route: 047
  3. VISINE A [Suspect]
     Active Substance: NAPHAZOLINE HYDROCHLORIDE\PHENIRAMINE MALEATE
     Indication: EYE IRRITATION
     Dosage: 1-2 DROPS PER EYE AT LEAST 3-4 TIMES A DAY
     Route: 047
  4. VISINE ADVANCED RELIEF [Suspect]
     Active Substance: DEXTRAN 70\POLYETHYLENE GLYCOL 400\POVIDONE\TETRAHYDROZOLINE HYDROCHLORIDE
     Indication: OCULAR HYPERAEMIA
     Dosage: 1-2 DROPS PER EYE AT LEAST 3-4 TIMES A DAY
     Route: 047
  5. VISINE ADVANCED RELIEF [Suspect]
     Active Substance: DEXTRAN 70\POLYETHYLENE GLYCOL 400\POVIDONE\TETRAHYDROZOLINE HYDROCHLORIDE
     Indication: EYE IRRITATION
     Dosage: 1-2 DROPS PER EYE AT LEAST 3-4 TIMES A DAY
     Route: 047
  6. VISINE ORIGINAL REDNESS RELIEF [Suspect]
     Active Substance: TETRAHYDROZOLINE HYDROCHLORIDE
     Indication: EYE IRRITATION
     Dosage: 1-2 DROPS PER EYE AT LEAST 3-4 TIMES A DAY
     Route: 047

REACTIONS (2)
  - Drug ineffective [Unknown]
  - Foreign body sensation in eyes [Unknown]
